FAERS Safety Report 11869798 (Version 5)
Quarter: 2016Q2

REPORT INFORMATION
  Report Type: Report from Study
  Country: US (occurrence: US)
  Receive Date: 20151228
  Receipt Date: 20160517
  Transmission Date: 20160815
  Serious: Yes (Other)
  Sender: FDA-Public Use
  Company Number: PHEH2015US026430

PATIENT
  Age: 31 Year
  Sex: Female
  Weight: 77.55 kg

DRUGS (12)
  1. PRENATAL [Concomitant]
     Active Substance: VITAMINS
     Indication: PRODUCT USED FOR UNKNOWN INDICATION
     Dosage: UNK
     Route: 048
     Dates: start: 20151220
  2. RITALIN [Concomitant]
     Active Substance: METHYLPHENIDATE HYDROCHLORIDE
     Indication: PRODUCT USED FOR UNKNOWN INDICATION
     Dosage: UNK
     Route: 065
     Dates: start: 201508, end: 20151214
  3. PHENTERMINE. [Concomitant]
     Active Substance: PHENTERMINE
     Indication: WEIGHT DECREASED
     Dosage: UNK
     Route: 065
     Dates: start: 201507, end: 20151214
  4. AMITRIPTYLINE [Concomitant]
     Active Substance: AMITRIPTYLINE
     Indication: SLEEP DISORDER
     Dosage: UNK
     Route: 065
     Dates: end: 20151201
  5. UNISOM SLEEPTABS [Concomitant]
     Active Substance: DOXYLAMINE SUCCINATE
     Indication: SLEEP DISORDER
     Dosage: 25 MG, UNK
     Route: 048
     Dates: start: 20151225
  6. ZITHROMAX [Concomitant]
     Active Substance: AZITHROMYCIN DIHYDRATE
     Indication: PROPHYLAXIS
     Dosage: 1 G, UNK
     Route: 065
     Dates: start: 20160122, end: 20160122
  7. VITAMIN B6 [Concomitant]
     Active Substance: PYRIDOXINE HYDROCHLORIDE
     Indication: NAUSEA
     Dosage: 50 MG, PRN
     Route: 065
     Dates: start: 20151225
  8. TYLENOL [Concomitant]
     Active Substance: ACETAMINOPHEN
     Indication: PAIN
     Dosage: 975 MG, PRN
     Route: 048
  9. GINGER. [Concomitant]
     Active Substance: GINGER
     Indication: NAUSEA
     Dosage: 500 MG, PRN
     Route: 048
  10. ROCEPHIN [Concomitant]
     Active Substance: CEFTRIAXONE SODIUM
     Indication: PROPHYLAXIS
     Dosage: UNK
     Route: 065
     Dates: start: 20160122, end: 20160122
  11. TYLENOL [Concomitant]
     Active Substance: ACETAMINOPHEN
     Indication: HEADACHE
  12. GILENYA [Suspect]
     Active Substance: FINGOLIMOD HYDROCHLORIDE
     Indication: MULTIPLE SCLEROSIS
     Dosage: 0.5 MG, QD
     Route: 048
     Dates: start: 201104, end: 20151215

REACTIONS (3)
  - Maternal exposure during pregnancy [Unknown]
  - Fungal infection [Recovered/Resolved]
  - Abdominal pain [Recovered/Resolved]

NARRATIVE: CASE EVENT DATE: 20160120
